FAERS Safety Report 8209630-2 (Version None)
Quarter: 2012Q1

REPORT INFORMATION
  Report Type: 
  Country: None (occurrence: None)
  Receive Date: 20120314
  Receipt Date: 20120220
  Transmission Date: 20120608
  Serious: Yes (Other)
  Sender: FDA-Public Use
  Company Number: FR-FRI-1000028681

PATIENT
  Sex: Male

DRUGS (2)
  1. ARICEPT [Suspect]
     Dates: end: 20120101
  2. MEMANTINE [Suspect]
     Indication: DEMENTIA ALZHEIMER'S TYPE
     Route: 048
     Dates: start: 20100901, end: 20111229

REACTIONS (1)
  - LIPASE INCREASED [None]
